FAERS Safety Report 19617988 (Version 1)
Quarter: 2021Q3

REPORT INFORMATION
  Report Type: Spontaneous
  Country: FR (occurrence: FR)
  Receive Date: 20210728
  Receipt Date: 20210728
  Transmission Date: 20211014
  Serious: Yes (Hospitalization)
  Sender: FDA-Public Use
  Company Number: FR-SUN PHARMACEUTICAL INDUSTRIES LTD-2021RR-305788

PATIENT
  Age: 22 Year
  Sex: Male

DRUGS (2)
  1. IBUPROFEN. [Suspect]
     Active Substance: IBUPROFEN
     Indication: ARTHRALGIA
     Dosage: 4 GRAM, INTAKE: 10 TABS OF 400 MG, I.E. 4G IN 24 HOURS; IN TOTAL
     Route: 048
     Dates: start: 20210626, end: 20210626
  2. DOLIPRANE [Suspect]
     Active Substance: ACETAMINOPHEN
     Indication: ARTHRALGIA
     Dosage: 19 GRAM, 06/25/2021: 16 TABS OF 1G 06/06/2021: 3 TABS OF 1G OR 19G IN 24 HOURS; IN TOTAL
     Route: 048
     Dates: start: 20210625, end: 20210626

REACTIONS (3)
  - Accidental overdose [Recovered/Resolved]
  - Hyperlipasaemia [Not Recovered/Not Resolved]
  - Incorrect dosage administered [Recovered/Resolved]
